FAERS Safety Report 17278260 (Version 1)
Quarter: 2020Q1

REPORT INFORMATION
  Report Type: Spontaneous
  Country: ES (occurrence: ES)
  Receive Date: 20200116
  Receipt Date: 20200116
  Transmission Date: 20200409
  Serious: Yes (Hospitalization)
  Sender: FDA-Public Use
  Company Number: ES-ZYDUS-046553

PATIENT
  Age: 60 Year
  Sex: Female

DRUGS (2)
  1. ARMOPL [ARMOLIPID] [Suspect]
     Active Substance: DIETARY SUPPLEMENT
     Indication: DYSLIPIDAEMIA
     Route: 048
     Dates: start: 201810, end: 20190326
  2. VALACICLOVIR [Suspect]
     Active Substance: VALACYCLOVIR HYDROCHLORIDE
     Indication: PRODUCT USED FOR UNKNOWN INDICATION
     Route: 048
     Dates: start: 20190324, end: 20190328

REACTIONS (3)
  - Hyperbilirubinaemia [Recovered/Resolved]
  - Hepatitis [Recovered/Resolved]
  - Hypocoagulable state [Recovered/Resolved]

NARRATIVE: CASE EVENT DATE: 20190329
